FAERS Safety Report 5974203-9 (Version None)
Quarter: 2008Q4

REPORT INFORMATION
  Report Type: 
  Country: None (occurrence: None)
  Receive Date: 20081125
  Receipt Date: 20081107
  Transmission Date: 20090506
  Serious: Yes (Life-Threatening, Hospitalization)
  Sender: FDA-Public Use
  Company Number: UTC-000422

PATIENT
  Age: 21 Year
  Sex: Male

DRUGS (1)
  1. REMODULIN [Suspect]
     Indication: PULMONARY ARTERIAL HYPERTENSION

REACTIONS (6)
  - DEVICE LEAKAGE [None]
  - HYPERHIDROSIS [None]
  - MEDICAL DEVICE COMPLICATION [None]
  - SHOCK [None]
  - TACHYCARDIA [None]
  - UNDERDOSE [None]
